FAERS Safety Report 4448255-1 (Version None)
Quarter: 2004Q3

REPORT INFORMATION
  Report Type: 
  Country: None (occurrence: None)
  Receive Date: 20040910
  Receipt Date: 20040825
  Transmission Date: 20050211
  Serious: Yes (Other)
  Sender: FDA-Public Use
  Company Number: 200410700BCA

PATIENT
  Sex: Male

DRUGS (83)
  1. PLASBUMIN-25 [Suspect]
     Dosage: SEE IMAGE
     Route: 042
     Dates: start: 19900307, end: 19900328
  2. PLASBUMIN-25 [Suspect]
     Dosage: SEE IMAGE
     Route: 042
     Dates: start: 19900323, end: 19900402
  3. PLASBUMIN-25 [Suspect]
     Dosage: SEE IMAGE
     Route: 042
     Dates: start: 19900313
  4. PLASBUMIN-25 [Suspect]
  5. PLASBUMIN-25 [Suspect]
  6. PLASBUMIN-5 [Suspect]
     Dosage: SEE IMAGE
     Route: 042
     Dates: start: 19900308, end: 19900321
  7. PLASBUMIN-5 [Suspect]
     Dosage: SEE IMAGE
     Route: 042
     Dates: start: 19900303, end: 19900323
  8. PLASBUMIN-5 [Suspect]
     Dosage: SEE IMAGE
     Route: 042
     Dates: start: 19900305
  9. PLASBUMIN-5 [Suspect]
     Dosage: SEE IMAGE
     Route: 042
     Dates: start: 19900324
  10. PLASBUMIN-5 [Suspect]
     Dosage: SEE IMAGE
     Route: 042
     Dates: start: 19900328
  11. PLASBUMIN-5 [Suspect]
  12. PLASBUMIN-5 [Suspect]
  13. PLASBUMIN-5 [Suspect]
  14. PLASBUMIN-5 [Suspect]
  15. RED BLOOD CELLS [Suspect]
     Dosage: INTRAVENOUS
     Route: 042
     Dates: start: 19900305
  16. RED BLOOD CELLS [Suspect]
     Dosage: INTRAVENOUS
     Route: 042
     Dates: start: 19900305
  17. RED BLOOD CELLS [Suspect]
     Dosage: INTRAVENOUS
     Route: 042
     Dates: start: 19900305
  18. RED BLOOD CELLS [Suspect]
     Dosage: INTRAVENOUS
     Route: 042
     Dates: start: 19900305
  19. RED BLOOD CELLS [Suspect]
     Dosage: INTRAVENOUS
     Route: 042
     Dates: start: 19900305
  20. RED BLOOD CELLS [Suspect]
     Dosage: INTRAVENOUS
     Route: 042
     Dates: start: 19900305
  21. RED BLOOD CELLS [Suspect]
     Dosage: INTRAVENOUS
     Route: 042
     Dates: start: 19900305
  22. RED BLOOD CELLS [Suspect]
     Dosage: INTRAVENOUS
     Route: 042
     Dates: start: 19900305
  23. RED BLOOD CELLS [Suspect]
     Dosage: INTRAVENOUS
     Route: 042
     Dates: start: 19900305
  24. RED BLOOD CELLS [Suspect]
     Dosage: INTRAVENOUS
     Route: 042
     Dates: start: 19900305
  25. RED BLOOD CELLS [Suspect]
     Dosage: INTRAVENOUS
     Route: 042
     Dates: start: 19900305
  26. RED BLOOD CELLS [Suspect]
     Dosage: INTRAVENOUS
     Route: 042
     Dates: start: 19900305
  27. RED BLOOD CELLS [Suspect]
     Dosage: INTRAVENOUS
     Route: 042
     Dates: start: 19900305
  28. RED BLOOD CELLS [Suspect]
     Dosage: INTRAVENOUS
     Route: 042
     Dates: start: 19900305
  29. RED BLOOD CELLS [Suspect]
     Dosage: INTRAVENOUS
     Route: 042
     Dates: start: 19900305
  30. RED BLOOD CELLS [Suspect]
     Dosage: INTRAVENOUS
     Route: 042
     Dates: start: 19900306
  31. RED BLOOD CELLS [Suspect]
  32. RED BLOOD CELLS [Suspect]
  33. RED BLOOD CELLS [Suspect]
  34. RED BLOOD CELLS [Suspect]
  35. RED BLOOD CELLS [Suspect]
  36. RED BLOOD CELLS [Suspect]
  37. RED BLOOD CELLS [Suspect]
  38. RED BLOOD CELLS [Suspect]
  39. RED BLOOD CELLS [Suspect]
  40. RED BLOOD CELLS [Suspect]
  41. RED BLOOD CELLS [Suspect]
  42. RED BLOOD CELLS [Suspect]
  43. RED BLOOD CELLS [Suspect]
  44. RED BLOOD CELLS [Suspect]
  45. RED BLOOD CELLS [Suspect]
  46. FRESH FROZEN PLASMA [Suspect]
     Dosage: INTRAVENOUS
     Route: 042
     Dates: start: 19910302
  47. FRESH FROZEN PLASMA [Suspect]
     Dosage: INTRAVENOUS
     Route: 042
     Dates: start: 19910305
  48. FRESH FROZEN PLASMA [Suspect]
  49. PLATELET (DIPYRIDAMOLE) [Suspect]
     Dosage: INTRAVENOUS
     Route: 042
     Dates: start: 19900305
  50. PLATELET (DIPYRIDAMOLE) [Suspect]
     Dosage: INTRAVENOUS
     Route: 042
     Dates: start: 19900305
  51. PLATELET (DIPYRIDAMOLE) [Suspect]
     Dosage: INTRAVENOUS
     Route: 042
     Dates: start: 19900305
  52. PLATELET (DIPYRIDAMOLE) [Suspect]
     Dosage: INTRAVENOUS
     Route: 042
     Dates: start: 19900305
  53. PLATELET (DIPYRIDAMOLE) [Suspect]
     Dosage: INTRAVENOUS
     Route: 042
     Dates: start: 19900305
  54. PLATELET (DIPYRIDAMOLE) [Suspect]
     Dosage: INTRAVENOUS
     Route: 042
     Dates: start: 19900305
  55. PLATELET (DIPYRIDAMOLE) [Suspect]
     Dosage: INTRAVENOUS
     Route: 042
     Dates: start: 19900305
  56. PLATELET (DIPYRIDAMOLE) [Suspect]
     Dosage: INTRAVENOUS
     Route: 042
     Dates: start: 19900305
  57. PLATELET (DIPYRIDAMOLE) [Suspect]
     Dosage: INTRAVENOUS
     Route: 042
     Dates: start: 19900305
  58. PLATELET (DIPYRIDAMOLE) [Suspect]
     Dosage: INTRAVENOUS
     Route: 042
     Dates: start: 19900305
  59. PLATELET (DIPYRIDAMOLE) [Suspect]
     Dosage: INTRAVENOUS
     Route: 042
     Dates: start: 19900305
  60. PLATELET (DIPYRIDAMOLE) [Suspect]
     Dosage: INTRAVENOUS
     Route: 042
     Dates: start: 19900305
  61. PLATELET (DIPYRIDAMOLE) [Suspect]
     Dosage: INTRAVENOUS
     Route: 042
     Dates: start: 19900306
  62. PLATELET (DIPYRIDAMOLE) [Suspect]
     Dosage: INTRAVENOUS
     Route: 042
     Dates: start: 19900306
  63. PLATELET (DIPYRIDAMOLE) [Suspect]
     Dosage: INTRAVENOUS
     Route: 042
     Dates: start: 19900306
  64. PLATELET (DIPYRIDAMOLE) [Suspect]
     Dosage: INTRAVENOUS
     Route: 042
     Dates: start: 19900306
  65. PLATELET (DIPYRIDAMOLE) [Suspect]
     Dosage: INTRAVENOUS
     Route: 042
     Dates: start: 19900306
  66. PLATELET (DIPYRIDAMOLE) [Suspect]
     Dosage: INTRAVENOUS
     Route: 042
     Dates: start: 19900306
  67. PLATELET (DIPYRIDAMOLE) [Suspect]
  68. PLATELET (DIPYRIDAMOLE) [Suspect]
  69. PLATELET (DIPYRIDAMOLE) [Suspect]
  70. PLATELET (DIPYRIDAMOLE) [Suspect]
  71. PLATELET (DIPYRIDAMOLE) [Suspect]
  72. PLATELET (DIPYRIDAMOLE) [Suspect]
  73. PLATELET (DIPYRIDAMOLE) [Suspect]
  74. PLATELET (DIPYRIDAMOLE) [Suspect]
  75. PLATELET (DIPYRIDAMOLE) [Suspect]
  76. PLATELET (DIPYRIDAMOLE) [Suspect]
  77. PLATELET (DIPYRIDAMOLE) [Suspect]
  78. PLATELET (DIPYRIDAMOLE) [Suspect]
  79. PLATELET (DIPYRIDAMOLE) [Suspect]
  80. PLATELET (DIPYRIDAMOLE) [Suspect]
  81. PLATELET (DIPYRIDAMOLE) [Suspect]
  82. PLATELET (DIPYRIDAMOLE) [Suspect]
  83. PLATELET (DIPYRIDAMOLE) [Suspect]

REACTIONS (1)
  - HEPATITIS C POSITIVE [None]
